FAERS Safety Report 9656301 (Version 1)
Quarter: 2013Q4

REPORT INFORMATION
  Report Type: Spontaneous
  Country: US (occurrence: US)
  Receive Date: 20131030
  Receipt Date: 20131030
  Transmission Date: 20140711
  Serious: No
  Sender: FDA-Public Use
  Company Number: US-PFIZER INC-2013307399

PATIENT
  Age: 62 Year
  Sex: Female

DRUGS (4)
  1. MORPHINE SULFATE [Suspect]
  2. VANCOMYCIN HCL [Suspect]
  3. LEVAQUIN [Suspect]
  4. ERYTHROMYCIN [Suspect]

REACTIONS (1)
  - Drug hypersensitivity [Unknown]
